FAERS Safety Report 17800118 (Version 2)
Quarter: 2020Q2

REPORT INFORMATION
  Report Type: Report from Study
  Country: US (occurrence: US)
  Receive Date: 20200518
  Receipt Date: 20200603
  Transmission Date: 20200714
  Serious: Yes (Hospitalization)
  Sender: FDA-Public Use
  Company Number: US-EISAI MEDICAL RESEARCH-EC-2020-073541

PATIENT
  Age: 53 Year
  Sex: Male
  Weight: 115.7 kg

DRUGS (17)
  1. LENVIMA [Suspect]
     Active Substance: LENVATINIB
     Route: 048
     Dates: start: 2020, end: 202005
  2. MULTI-VITAMIN [Concomitant]
     Active Substance: .ALPHA.-TOCOPHEROL ACETATE, DL-\ASCORBIC ACID\CYANOCOBALAMIN\FLUORIDE ION\FOLIC ACID\NIACIN\PYRIDOXINE\RIBOFLAVIN\THIAMINE\VITAMIN A\VITAMIN D
  3. TEMAZEPAM. [Concomitant]
     Active Substance: TEMAZEPAM
  4. LACTULOSE. [Concomitant]
     Active Substance: LACTULOSE
  5. PANTOPRAZOLE SODIUM. [Concomitant]
     Active Substance: PANTOPRAZOLE SODIUM
  6. VITAMIN D [Concomitant]
     Active Substance: VITAMIN D NOS
  7. LENVIMA [Suspect]
     Active Substance: LENVATINIB
     Indication: HEPATOCELLULAR CARCINOMA
     Route: 048
     Dates: start: 20200415, end: 202004
  8. LENVIMA [Suspect]
     Active Substance: LENVATINIB
     Route: 048
     Dates: start: 202005
  9. LISINOPRIL. [Concomitant]
     Active Substance: LISINOPRIL
  10. TRAZODONE [Concomitant]
     Active Substance: TRAZODONE HYDROCHLORIDE
  11. DULOXETINE HCL [Concomitant]
     Active Substance: DULOXETINE HYDROCHLORIDE
  12. HYDROCHLOROTHIAZIDE. [Concomitant]
     Active Substance: HYDROCHLOROTHIAZIDE
  13. PROPRANOLOL [Concomitant]
     Active Substance: PROPRANOLOL HYDROCHLORIDE
  14. MS CONTIN [Concomitant]
     Active Substance: MORPHINE SULFATE
  15. XIFAXAN [Concomitant]
     Active Substance: RIFAXIMIN
  16. LENVIMA [Suspect]
     Active Substance: LENVATINIB
     Route: 048
     Dates: start: 2020, end: 2020
  17. NORCO [Concomitant]
     Active Substance: ACETAMINOPHEN\HYDROCODONE BITARTRATE

REACTIONS (6)
  - Confusional state [Unknown]
  - Abdominal distension [Unknown]
  - Ammonia increased [Unknown]
  - Dyskinesia [Unknown]
  - Abdominal pain [Unknown]
  - Somnolence [Unknown]

NARRATIVE: CASE EVENT DATE: 2020
